FAERS Safety Report 24085475 (Version 1)
Quarter: 2024Q3

REPORT INFORMATION
  Report Type: Spontaneous
  Country: US (occurrence: None)
  Receive Date: 20240712
  Receipt Date: 20240712
  Transmission Date: 20241016
  Serious: Yes (Death)
  Sender: Public
  Company Number: None

PATIENT
  Age: 30 Year
  Sex: Female
  Weight: 45.36 kg

DRUGS (1)
  1. GATTEX [Suspect]
     Active Substance: TEDUGLUTIDE\WATER
     Indication: Short-bowel syndrome
     Dosage: 1.35 MG DAILY SUBCUTANEOUS
     Route: 058
     Dates: start: 20190726, end: 20240624

REACTIONS (4)
  - Disease complication [None]
  - Decreased appetite [None]
  - Cardiac failure [None]
  - Therapy interrupted [None]

NARRATIVE: CASE EVENT DATE: 20240624
